APPROVED DRUG PRODUCT: NAPROXEN SODIUM
Active Ingredient: NAPROXEN SODIUM
Strength: EQ 200MG BASE
Dosage Form/Route: CAPSULE;ORAL
Application: A215472 | Product #001
Applicant: ONESOURCE SPECIALTY PTE LTD
Approved: Aug 17, 2022 | RLD: No | RS: No | Type: DISCN